FAERS Safety Report 4691950-X (Version None)
Quarter: 2005Q2

REPORT INFORMATION
  Report Type: 
  Country: None (occurrence: None)
  Receive Date: 20050616
  Receipt Date: 20050616
  Transmission Date: 20051028
  Serious: Yes (Disabling)
  Sender: FDA-Public Use
  Company Number: None

PATIENT
  Age: 52 Year
  Sex: Male
  Weight: 79.8331 kg

DRUGS (3)
  1. CRESTOR [Suspect]
     Indication: RETINAL VEIN OCCLUSION
     Dosage: 1 TABLET Q DAY
     Dates: start: 20040422
  2. ZETIA [Suspect]
     Dosage: 1 TABLET Q DAY
  3. AVALIDE [Concomitant]

REACTIONS (2)
  - BLINDNESS UNILATERAL [None]
  - RETINAL VEIN OCCLUSION [None]
